APPROVED DRUG PRODUCT: DRONABINOL
Active Ingredient: DRONABINOL
Strength: 5MG
Dosage Form/Route: CAPSULE;ORAL
Application: A078501 | Product #002
Applicant: INSYS THERAPEUTICS INC
Approved: Aug 19, 2011 | RLD: No | RS: No | Type: DISCN